FAERS Safety Report 8533312-0 (Version None)
Quarter: 2012Q2

REPORT INFORMATION
  Report Type: 
  Country: None (occurrence: None)
  Receive Date: 20120412
  Receipt Date: 20120203
  Transmission Date: 20120825
  Serious: Yes (Other)
  Sender: FDA-Public Use
  Company Number: 2012S1000008

PATIENT
  Age: 53 Year
  Sex: Male

DRUGS (6)
  1. BENADRYL /00945501/ [Concomitant]
  2. SOLU-MEDROL [Concomitant]
  3. PRAVACHOL [Concomitant]
  4. KRYSTEXXA [Suspect]
     Indication: GOUT
     Dosage: 8 MG; ; IV
     Route: 042
     Dates: start: 20120118, end: 20120202
  5. PREDNISONE [Concomitant]
  6. CYMBALTA [Concomitant]

REACTIONS (1)
  - ANAPHYLACTIC SHOCK [None]
